FAERS Safety Report 4547989-8 (Version None)
Quarter: 2004Q4

REPORT INFORMATION
  Report Type: 
  Country: None (occurrence: None)
  Receive Date: 20041227
  Receipt Date: 20040921
  Transmission Date: 20050328
  Serious: No
  Sender: FDA-Public Use
  Company Number: 04P-163-0273930-00

PATIENT
  Age: 82 Year
  Sex: Female
  Weight: 70.3075 kg

DRUGS (8)
  1. HUMIRA [Suspect]
     Indication: RHEUMATOID ARTHRITIS
     Dosage: 40 MG, 1 IN 2 WK, SUBCUTANEOUS
     Route: 058
     Dates: start: 20031101
  2. NIFEDIPINE [Concomitant]
  3. ATORVASTATIN [Concomitant]
  4. FUROSEMIDE [Concomitant]
  5. POTASSIUM [Concomitant]
  6. MULTIVITAMIN [Concomitant]
  7. OCUVITE [Concomitant]
  8. LINSEED OIL [Concomitant]

REACTIONS (1)
  - INJECTION SITE EXTRAVASATION [None]
